FAERS Safety Report 4903521-8 (Version None)
Quarter: 2006Q1

REPORT INFORMATION
  Report Type: 
  Country: None (occurrence: None)
  Receive Date: 20060206
  Receipt Date: 20060206
  Transmission Date: 20060701
  Serious: Yes (Congenital Anomaly)
  Sender: FDA-Public Use
  Company Number: None

PATIENT
  Sex: Female
  Weight: 0.36 kg

DRUGS (2)
  1. GLUCOPHAGE [Suspect]
     Indication: POLYCYSTIC OVARIES
     Dosage: 500MG 3X PER DAY
     Dates: start: 20050101
  2. PRE-NATAL VITAMINS [Concomitant]

REACTIONS (4)
  - ABORTION INDUCED [None]
  - CLEFT LIP [None]
  - CLEFT PALATE [None]
  - DRUG EXPOSURE DURING PREGNANCY [None]
